FAERS Safety Report 5774307-X (Version None)
Quarter: 2008Q2

REPORT INFORMATION
  Report Type: 
  Country: None (occurrence: None)
  Receive Date: 20080616
  Receipt Date: 20080605
  Transmission Date: 20081010
  Serious: Yes (Hospitalization)
  Sender: FDA-Public Use
  Company Number: GR-PFIZER INC-2006154865

PATIENT
  Sex: Male
  Weight: 79 kg

DRUGS (3)
  1. SU-011,248 [Suspect]
     Indication: RENAL CANCER METASTATIC
     Route: 048
  2. PLAVIX [Concomitant]
  3. LIPITOR [Concomitant]
     Dates: start: 20061222

REACTIONS (1)
  - PERIPHERAL SENSORY NEUROPATHY [None]
